FAERS Safety Report 14891262 (Version 1)
Quarter: 2018Q2

REPORT INFORMATION
  Report Type: Spontaneous
  Country: US (occurrence: US)
  Receive Date: 20180514
  Receipt Date: 20180514
  Transmission Date: 20180711
  Serious: No
  Sender: FDA-Public Use
  Company Number: US-UNITED THERAPEUTICS-UNT-2017-017349

PATIENT
  Sex: Female

DRUGS (1)
  1. REMODULIN [Suspect]
     Active Substance: TREPROSTINIL
     Indication: PULMONARY ARTERIAL HYPERTENSION
     Dosage: 0.0312 UG/KG, CONTINUING
     Route: 058
     Dates: start: 20170214

REACTIONS (5)
  - Oxygen saturation decreased [Unknown]
  - Infusion site pain [Unknown]
  - Blood pressure abnormal [Unknown]
  - Infusion site rash [Unknown]
  - Sinusitis [Unknown]

NARRATIVE: CASE EVENT DATE: 201711
